FAERS Safety Report 7360410-X (Version None)
Quarter: 2011Q1

REPORT INFORMATION
  Report Type: 
  Country: None (occurrence: None)
  Receive Date: 20110318
  Receipt Date: 20100909
  Transmission Date: 20110831
  Serious: Yes (Hospitalization)
  Sender: FDA-Public Use
  Company Number: US-BAYER-201023064NA

PATIENT
  Sex: Female
  Weight: 49.887 kg

DRUGS (9)
  1. NAPROXEN [Concomitant]
     Dosage: 500 MG, UNK
     Route: 048
     Dates: start: 20030905
  2. FLUTICASONE PROPIONATE [Concomitant]
     Dosage: UNK
     Route: 045
     Dates: start: 20060824
  3. IBUPROFEN [Concomitant]
     Dosage: 800 MG, UNK
     Route: 048
     Dates: start: 20050110
  4. SKELAXIN [Concomitant]
     Dosage: 800 MG, UNK
     Route: 048
     Dates: start: 20051111
  5. LORAZEPAM [Concomitant]
     Dosage: 2 MG, UNK
     Route: 048
     Dates: start: 20030905
  6. ALBUTEROL [Concomitant]
     Dosage: 90 MCG/24HR, UNK
     Dates: start: 20040211
  7. YASMIN [Suspect]
     Indication: MENSTRUATION IRREGULAR
     Dosage: UNK UNK, QD
     Route: 048
     Dates: start: 20030901, end: 20070301
  8. ZITHROMAX [Concomitant]
     Dosage: 250 MG, UNK
     Route: 048
     Dates: start: 20040212
  9. DOXYCYCLINE [Concomitant]
     Dosage: 100 MG, UNK
     Route: 048

REACTIONS (2)
  - DEEP VEIN THROMBOSIS [None]
  - FEAR [None]
